FAERS Safety Report 23973625 (Version 1)
Quarter: 2024Q2

REPORT INFORMATION
  Report Type: Spontaneous
  Country: AU (occurrence: AU)
  Receive Date: 20240613
  Receipt Date: 20240613
  Transmission Date: 20240716
  Serious: Yes (Other)
  Sender: FDA-Public Use
  Company Number: AU-PFIZER INC-PV202300193291

PATIENT
  Age: 34 Year
  Sex: Male

DRUGS (6)
  1. PALIPERIDONE [Suspect]
     Active Substance: PALIPERIDONE
     Dosage: 3 MG, QD
     Route: 065
  2. PALIPERIDONE [Suspect]
     Active Substance: PALIPERIDONE
     Dosage: 3 MG, QD
     Route: 065
  3. PALIPERIDONE [Suspect]
     Active Substance: PALIPERIDONE
     Dosage: 6 MG, QD
     Route: 065
  4. PALIPERIDONE [Suspect]
     Active Substance: PALIPERIDONE
     Indication: Schizophrenia
     Dosage: UNK, QD
     Route: 065
  5. VORICONAZOLE [Suspect]
     Active Substance: VORICONAZOLE
     Indication: Pyrexia
     Dosage: 12 MG/KG, QD
     Route: 048
  6. VORICONAZOLE [Suspect]
     Active Substance: VORICONAZOLE
     Indication: Fungal infection
     Dosage: 8 MG/KG, QD
     Route: 048

REACTIONS (3)
  - Drug interaction [Unknown]
  - Drug level increased [Unknown]
  - Extrapyramidal disorder [Recovered/Resolved]
